FAERS Safety Report 19764953 (Version 3)
Quarter: 2021Q4

REPORT INFORMATION
  Report Type: Spontaneous
  Country: DE (occurrence: DE)
  Receive Date: 20210831
  Receipt Date: 20211012
  Transmission Date: 20220304
  Serious: Yes (Death, Hospitalization, Other)
  Sender: FDA-Public Use
  Company Number: DE-AMGEN-DEUNI2021125976

PATIENT
  Age: 60 Year
  Sex: Male

DRUGS (2)
  1. HYDROMORPHONE [Suspect]
     Active Substance: HYDROMORPHONE
     Indication: Product used for unknown indication
     Dosage: 96 MILLIGRAM, ONCE A DAY (32 MILLIGRAM, TID 3 SEPARATED DOSES)
     Route: 048
     Dates: start: 202105, end: 20210813
  2. AMG-510 [Suspect]
     Active Substance: AMG-510
     Indication: Non-small cell lung cancer
     Dosage: 960 MILLIGRAM, ONCE A DAY (960 MILLIGRAM, QD)
     Route: 048
     Dates: start: 20210715, end: 20210809

REACTIONS (2)
  - Sopor [Fatal]
  - Respiratory failure [Fatal]

NARRATIVE: CASE EVENT DATE: 20210808
